FAERS Safety Report 7558409-3 (Version None)
Quarter: 2011Q2

REPORT INFORMATION
  Report Type: 
  Country: None (occurrence: None)
  Receive Date: 20110620
  Receipt Date: 20110616
  Transmission Date: 20111010
  Serious: Yes (Death)
  Sender: FDA-Public Use
  Company Number: US-B.I. PHARMACEUTICALS,INC./RIDGEFIELD-2010-BP-03538BP

PATIENT
  Sex: Male
  Weight: 74.8 kg

DRUGS (8)
  1. DABIGATRAN [Suspect]
     Indication: ATRIAL FIBRILLATION
  2. LISINOPRIL AND HYDROCHLOROTHIAZIDE [Concomitant]
     Indication: HYPERTENSION
     Route: 048
     Dates: start: 19800101, end: 20100320
  3. AGGRENOX [Suspect]
     Indication: TRANSIENT ISCHAEMIC ATTACK
     Route: 048
     Dates: end: 20100320
  4. WELCHOL [Concomitant]
     Indication: HYPERLIPIDAEMIA
     Dosage: 1250 MG
     Route: 048
     Dates: start: 20090201, end: 20100320
  5. OMEPRAZOLE [Concomitant]
     Indication: GASTROOESOPHAGEAL REFLUX DISEASE
     Dosage: 60 MG
     Route: 048
     Dates: start: 20050101, end: 20100320
  6. DABIGATRAN [Suspect]
     Indication: CEREBROVASCULAR ACCIDENT PROPHYLAXIS
     Route: 048
     Dates: start: 20070216, end: 20100320
  7. CELEBREX [Concomitant]
     Indication: DEPRESSION
     Dosage: 400 MG
     Route: 048
     Dates: start: 20020101, end: 20100320
  8. TRAMADOL HCL [Concomitant]
     Indication: PAIN
     Dosage: 50 MG
     Route: 048
     Dates: end: 20100320

REACTIONS (1)
  - CEREBRAL HAEMORRHAGE [None]
